FAERS Safety Report 16527247 (Version 1)
Quarter: 2019Q3

REPORT INFORMATION
  Report Type: Spontaneous
  Country: US (occurrence: US)
  Receive Date: 20190703
  Receipt Date: 20190703
  Transmission Date: 20191004
  Serious: Yes (Other)
  Sender: FDA-Public Use
  Company Number: US-SA-2017SA252862

PATIENT
  Sex: Female

DRUGS (19)
  1. TAXOTERE [Suspect]
     Active Substance: DOCETAXEL
     Dosage: 135 MG, QCY
     Route: 042
     Dates: start: 20100820, end: 20100820
  2. ZOFRAN [Concomitant]
     Active Substance: ONDANSETRON HYDROCHLORIDE
     Dosage: 24 MG, UNK
     Route: 048
     Dates: start: 20100528, end: 20100528
  3. CYTOXAN [Concomitant]
     Active Substance: CYCLOPHOSPHAMIDE
     Dosage: 1100 MG, UNK
     Route: 042
     Dates: start: 20100910, end: 20100910
  4. TAXOTERE [Suspect]
     Active Substance: DOCETAXEL
     Dosage: 135 MG, QCY
     Route: 042
     Dates: start: 20100618, end: 20100618
  5. TAXOTERE [Suspect]
     Active Substance: DOCETAXEL
     Dosage: 135 MG, QCY
     Route: 042
     Dates: start: 20100709, end: 20100709
  6. CYTOXAN [Concomitant]
     Active Substance: CYCLOPHOSPHAMIDE
     Dosage: 1100 MG, UNK
     Route: 042
     Dates: start: 20100618, end: 20100618
  7. CYTOXAN [Concomitant]
     Active Substance: CYCLOPHOSPHAMIDE
     Dosage: 1100 MG, UNK
     Route: 042
     Dates: start: 20100820, end: 20100820
  8. ZOFRAN [Concomitant]
     Active Substance: ONDANSETRON HYDROCHLORIDE
     Dosage: 24 MG, UNK
     Route: 048
     Dates: start: 20100730, end: 20100730
  9. DECADRON [Concomitant]
     Active Substance: DEXAMETHASONE
     Dosage: 8 MG, BID
     Route: 048
  10. CYTOXAN [Concomitant]
     Active Substance: CYCLOPHOSPHAMIDE
     Dosage: 1100 MG, UNK
     Route: 042
     Dates: start: 20100709, end: 20100709
  11. TAXOTERE [Suspect]
     Active Substance: DOCETAXEL
     Dosage: 135 MG, QCY
     Route: 042
     Dates: start: 20100730, end: 20100730
  12. TAXOTERE [Suspect]
     Active Substance: DOCETAXEL
     Dosage: 135 MG, QCY
     Route: 042
     Dates: start: 20100910, end: 20100910
  13. ZOFRAN [Concomitant]
     Active Substance: ONDANSETRON HYDROCHLORIDE
     Dosage: 24 MG, UNK
     Route: 048
     Dates: start: 20100709, end: 20100709
  14. ZOFRAN [Concomitant]
     Active Substance: ONDANSETRON HYDROCHLORIDE
     Dosage: 24 MG, UNK
     Route: 048
     Dates: start: 20100820, end: 20100820
  15. CYTOXAN [Concomitant]
     Active Substance: CYCLOPHOSPHAMIDE
     Dosage: 1100 MG, UNK
     Route: 042
     Dates: start: 20100528, end: 20100528
  16. TAXOTERE [Suspect]
     Active Substance: DOCETAXEL
     Dosage: 135 MG, QCY
     Route: 042
     Dates: start: 20100528, end: 20100528
  17. ZOFRAN [Concomitant]
     Active Substance: ONDANSETRON HYDROCHLORIDE
     Dosage: 24 MG, UNK
     Route: 048
     Dates: start: 20100618, end: 20100618
  18. ZOFRAN [Concomitant]
     Active Substance: ONDANSETRON HYDROCHLORIDE
     Dosage: 24 MG, UNK
     Route: 048
     Dates: start: 20100910, end: 20100910
  19. CYTOXAN [Concomitant]
     Active Substance: CYCLOPHOSPHAMIDE
     Dosage: 1100 MG, UNK
     Route: 042
     Dates: start: 20100730, end: 20100730

REACTIONS (1)
  - Alopecia [Not Recovered/Not Resolved]
